FAERS Safety Report 11243021 (Version 3)
Quarter: 2015Q3

REPORT INFORMATION
  Report Type: Spontaneous
  Country: DE (occurrence: DE)
  Receive Date: 20150707
  Receipt Date: 20150915
  Transmission Date: 20151125
  Serious: Yes (Disabling, Other)
  Sender: FDA-Public Use
  Company Number: DE-ABBVIE-15P-062-1421322-00

PATIENT
  Sex: Male

DRUGS (2)
  1. ERGENYL CHRONO [Suspect]
     Active Substance: VALPROIC ACID
     Indication: BIPOLAR DISORDER
     Dosage: EXTENDED RELEASE
     Route: 048
  2. ERGENYL CHRONO [Suspect]
     Active Substance: VALPROIC ACID
     Dosage: EXTENDED RELEASE
     Route: 048
     Dates: start: 2001, end: 2015

REACTIONS (2)
  - Cerebral atrophy [Unknown]
  - Chronic kidney disease [Not Recovered/Not Resolved]
